FAERS Safety Report 9511707 (Version 1)
Quarter: 2013Q3

REPORT INFORMATION
  Report Type: Spontaneous
  Country: FR (occurrence: None)
  Receive Date: 20130906
  Receipt Date: 20130906
  Transmission Date: 20140515
  Serious: Yes (Hospitalization)
  Sender: FDA-Public Use
  Company Number: B0920207A

PATIENT
  Age: 60 Year
  Sex: Male

DRUGS (2)
  1. VALACICLOVIR HYDROCHLORIDE [Suspect]
     Indication: OPHTHALMIC HERPES SIMPLEX
     Dosage: 1 GRAM(S)/THREE TIMES PER DAY/ORAL
     Route: 048
  2. CORTICOSTEROID [Concomitant]

REACTIONS (11)
  - Ocular hypertension [None]
  - Drug intolerance [None]
  - Leukopenia [None]
  - Corneal scar [None]
  - Visual acuity reduced [None]
  - Drug resistance [None]
  - Treatment noncompliance [None]
  - Drug level below therapeutic [None]
  - Ophthalmic herpes simplex [None]
  - Disease recurrence [None]
  - Eye inflammation [None]
